FAERS Safety Report 7116109-8 (Version None)
Quarter: 2010Q4

REPORT INFORMATION
  Report Type: 
  Country: None (occurrence: None)
  Receive Date: 20101122
  Receipt Date: 20101112
  Transmission Date: 20110411
  Serious: Yes (Hospitalization)
  Sender: FDA-Public Use
  Company Number: JP-ROCHE-742548

PATIENT

DRUGS (5)
  1. AVASTIN [Suspect]
     Indication: LARGE INTESTINE CARCINOMA
     Route: 042
     Dates: start: 20100601, end: 20100930
  2. IRINOTECAN [Suspect]
     Indication: LARGE INTESTINE CARCINOMA
     Dosage: NOTE: DOSAGE IS UNCERTAIN. DRUG:IRINOTECAN HYDROCHLORIDE(IRINOTECAN HYDROCHLORIDE)
     Route: 041
  3. 5-FU [Suspect]
     Indication: LARGE INTESTINE CARCINOMA
     Dosage: NOTE: DOSAGE IS UNCERTAIN.
     Route: 040
  4. 5-FU [Suspect]
     Dosage: NOTE: DOSAGE IS UNCERTAIN.
     Route: 041
  5. LEVOFOLINATE [Suspect]
     Indication: LARGE INTESTINE CARCINOMA
     Dosage: NOTE: DOSAGE IS UNCERTAIN. DRUG:LEVOFOLINATE CALCIUM(LEVOFOLINATE CALCIUM)
     Route: 041

REACTIONS (1)
  - CONGESTIVE CARDIOMYOPATHY [None]
